FAERS Safety Report 9433754 (Version 1)
Quarter: 2013Q3

REPORT INFORMATION
  Report Type: Spontaneous
  Country: DE (occurrence: None)
  Receive Date: 20130729
  Receipt Date: 20130729
  Transmission Date: 20140515
  Serious: Yes (Hospitalization)
  Sender: FDA-Public Use
  Company Number: DE-20130135

PATIENT
  Age: 36 Year
  Sex: Female

DRUGS (1)
  1. DATARM [Suspect]
     Indication: NUCLEAR MAGNETIC RESONANCE IMAGING BRAIN
     Route: 042
     Dates: start: 20130712, end: 20130712

REACTIONS (2)
  - Angioedema [None]
  - Contrast media reaction [None]
